FAERS Safety Report 18019777 (Version 2)
Quarter: 2020Q3

REPORT INFORMATION
  Report Type: Spontaneous
  Country: US (occurrence: US)
  Receive Date: 20200714
  Receipt Date: 20200717
  Transmission Date: 20201103
  Serious: No
  Sender: FDA-Public Use
  Company Number: US-VERTEX PHARMACEUTICALS-2020-014318

PATIENT
  Age: 45 Year
  Sex: Female

DRUGS (1)
  1. TRIKAFTA [Suspect]
     Active Substance: ELEXACAFTOR\IVACAFTOR\TEZACAFTOR
     Indication: CYSTIC FIBROSIS
     Dosage: 100MG ELEXACAFTOR/50MG TEZACAFTOR/75MG IVACAFTOR AND 150MG IVACAFTOR, FREQ UNK
     Route: 048
     Dates: start: 20191211

REACTIONS (2)
  - Photosensitivity reaction [Not Recovered/Not Resolved]
  - Solar dermatitis [Not Recovered/Not Resolved]

NARRATIVE: CASE EVENT DATE: 202004
